FAERS Safety Report 8912873 (Version 1)
Quarter: 2012Q4

REPORT INFORMATION
  Report Type: 
  Country: US (occurrence: US)
  Receive Date: 20121116
  Receipt Date: 20121116
  Transmission Date: 20130627
  Serious: Yes (Hospitalization)
  Sender: FDA-Public Use
  Company Number: US-GLAXOSMITHKLINE-A0898300A

PATIENT
  Age: 62 Year
  Sex: Male

DRUGS (6)
  1. ROSIGLITAZONE MALEATE [Suspect]
     Indication: DIABETES MELLITUS
     Route: 048
  2. AMARYL [Concomitant]
  3. COREG [Concomitant]
  4. COUMADIN [Concomitant]
  5. LEVEMIR [Concomitant]
  6. PRAVACHOL [Concomitant]

REACTIONS (2)
  - Cardiac failure congestive [Not Recovered/Not Resolved]
  - Cardiovascular disorder [Unknown]
